FAERS Safety Report 7036037-6 (Version None)
Quarter: 2010Q4

REPORT INFORMATION
  Report Type: 
  Country: None (occurrence: None)
  Receive Date: 20101008
  Receipt Date: 20101001
  Transmission Date: 20110411
  Serious: Yes (Other)
  Sender: FDA-Public Use
  Company Number: US-PURDUE-USA-2010-0048302

PATIENT
  Age: 57 Year
  Sex: Female

DRUGS (1)
  1. OXYCONTIN [Suspect]
     Indication: PRODUCT USED FOR UNKNOWN INDICATION
     Dosage: 80 MG, SEE TEXT
     Dates: start: 20100815

REACTIONS (5)
  - CONSTIPATION [None]
  - MALIGNANT NEOPLASM PROGRESSION [None]
  - MEDICATION RESIDUE [None]
  - NODULE [None]
  - THERAPEUTIC RESPONSE DECREASED [None]
